FAERS Safety Report 15565464 (Version 1)
Quarter: 2018Q4

REPORT INFORMATION
  Report Type: Report from Study
  Country: US (occurrence: US)
  Receive Date: 20181030
  Receipt Date: 20181030
  Transmission Date: 20190205
  Serious: Yes (Hospitalization, Other)
  Sender: FDA-Public Use
  Company Number: US-ASTELLAS-2018US045230

PATIENT
  Age: 37 Year
  Sex: Female
  Weight: 63 kg

DRUGS (57)
  1. ISAVUCONAZOLE [Suspect]
     Active Substance: ISAVUCONAZOLE
     Indication: INFECTION PROPHYLAXIS
     Route: 048
     Dates: start: 20180921, end: 20180923
  2. NASAL SPRAY II [Concomitant]
     Indication: PRODUCT USED FOR UNKNOWN INDICATION
     Dosage: 1 DF, OTHER (EVERY 4 HOURS)
     Route: 045
     Dates: start: 20180916, end: 20180917
  3. PALONOSETRON. [Concomitant]
     Active Substance: PALONOSETRON HYDROCHLORIDE
     Indication: PRODUCT USED FOR UNKNOWN INDICATION
     Dosage: 250 MCG, ONCE DAILY
     Route: 042
     Dates: start: 20180916, end: 20180916
  4. VANCOMYCIN [Concomitant]
     Active Substance: VANCOMYCIN
     Indication: PRODUCT USED FOR UNKNOWN INDICATION
     Route: 042
     Dates: start: 20180916, end: 20180916
  5. ACETAMINOPHEN. [Concomitant]
     Active Substance: ACETAMINOPHEN
     Route: 048
     Dates: start: 20181009, end: 20181009
  6. LOPERAMIDE [Concomitant]
     Active Substance: LOPERAMIDE
     Dosage: 2 MG, OTHER (8 TIMES DAILY)
     Route: 048
     Dates: start: 20181003, end: 20181003
  7. SIROLIMUS. [Concomitant]
     Active Substance: SIROLIMUS
     Indication: PRODUCT USED FOR UNKNOWN INDICATION
     Route: 048
     Dates: start: 20180918, end: 20180918
  8. DIPHENHYDRAMINE. [Concomitant]
     Active Substance: DIPHENHYDRAMINE
     Route: 048
     Dates: start: 20181005, end: 20181005
  9. VANCOMYCIN [Concomitant]
     Active Substance: VANCOMYCIN
     Route: 042
     Dates: start: 20180917, end: 20180920
  10. ACETAMINOPHEN. [Concomitant]
     Active Substance: ACETAMINOPHEN
     Route: 048
     Dates: start: 20180924, end: 20181001
  11. ACETAMINOPHEN. [Concomitant]
     Active Substance: ACETAMINOPHEN
     Dosage: 650 MG, OTHER (EVERY 8 HOURS)
     Route: 048
     Dates: start: 20181005, end: 20181005
  12. POTASSIUM CHLORIDE. [Concomitant]
     Active Substance: POTASSIUM CHLORIDE
     Indication: PRODUCT USED FOR UNKNOWN INDICATION
     Dosage: 20 MEQ, OTHER (ONCE A HOUR)
     Route: 065
     Dates: start: 20180916, end: 20180917
  13. POTASSIUM CHLORIDE. [Concomitant]
     Active Substance: POTASSIUM CHLORIDE
     Dosage: 20 MEQ, THRICE DAILY
     Route: 048
     Dates: start: 20180923, end: 20180923
  14. POTASSIUM CHLORIDE. [Concomitant]
     Active Substance: POTASSIUM CHLORIDE
     Dosage: 20 MEQ, ONCE DAILY
     Route: 048
     Dates: start: 20181002, end: 20181002
  15. LOPERAMIDE [Concomitant]
     Active Substance: LOPERAMIDE
     Dosage: 2 MG, OTHER (8 TIMES DAILY)
     Route: 048
     Dates: start: 20180924, end: 20181002
  16. SIROLIMUS. [Concomitant]
     Active Substance: SIROLIMUS
     Route: 048
     Dates: start: 20180920, end: 20180920
  17. SIROLIMUS. [Concomitant]
     Active Substance: SIROLIMUS
     Route: 048
     Dates: start: 20180929, end: 20181003
  18. MYCOPHENOLATE MOFETIL. [Concomitant]
     Active Substance: MYCOPHENOLATE MOFETIL
     Dosage: 1 MG, EVERY 8 HOURS
     Route: 048
     Dates: start: 20181001, end: 20181003
  19. DIPHENHYDRAMINE. [Concomitant]
     Active Substance: DIPHENHYDRAMINE
     Indication: PRODUCT USED FOR UNKNOWN INDICATION
     Route: 042
     Dates: start: 20180923, end: 20180923
  20. DIPHENHYDRAMINE. [Concomitant]
     Active Substance: DIPHENHYDRAMINE
     Route: 048
     Dates: start: 20181009, end: 20181009
  21. FOLIC ACID. [Concomitant]
     Active Substance: FOLIC ACID
     Indication: PRODUCT USED FOR UNKNOWN INDICATION
     Route: 048
     Dates: start: 20180927, end: 20181003
  22. ISAVUCONAZOLE [Suspect]
     Active Substance: ISAVUCONAZOLE
     Indication: ANTIFUNGAL PROPHYLAXIS
     Route: 048
     Dates: start: 20180924, end: 20181015
  23. NORMAL SALINE [Concomitant]
     Active Substance: SODIUM CHLORIDE
     Route: 042
     Dates: start: 20180921, end: 20180922
  24. MAGNESIUM SULFATE. [Concomitant]
     Active Substance: MAGNESIUM SULFATE
     Indication: PRODUCT USED FOR UNKNOWN INDICATION
     Route: 042
     Dates: start: 20180916, end: 20180916
  25. SIROLIMUS. [Concomitant]
     Active Substance: SIROLIMUS
     Route: 048
     Dates: start: 20180919, end: 20180920
  26. HYDROCORTISONE. [Concomitant]
     Active Substance: HYDROCORTISONE
     Indication: PRODUCT USED FOR UNKNOWN INDICATION
     Dosage: 2.5%, EVERY 8 HOURS
     Route: 061
     Dates: start: 20180926, end: 20181002
  27. PHENAZOPYRIDINE. [Concomitant]
     Active Substance: PHENAZOPYRIDINE
     Indication: PRODUCT USED FOR UNKNOWN INDICATION
     Route: 048
     Dates: start: 20181005, end: 20181005
  28. PENTAMIDINE [Concomitant]
     Active Substance: PENTAMIDINE
     Indication: PRODUCT USED FOR UNKNOWN INDICATION
     Route: 065
     Dates: start: 20181010, end: 20181010
  29. NORMAL SALINE [Concomitant]
     Active Substance: SODIUM CHLORIDE
     Dosage: 1000 ML, OTHER (CONTINUOUS)
     Route: 042
     Dates: start: 20180917, end: 20180918
  30. NORMAL SALINE [Concomitant]
     Active Substance: SODIUM CHLORIDE
     Route: 042
     Dates: start: 20180922, end: 20180923
  31. NORMAL SALINE [Concomitant]
     Active Substance: SODIUM CHLORIDE
     Route: 042
     Dates: start: 20180923, end: 20180924
  32. MESNA. [Concomitant]
     Active Substance: MESNA
     Indication: PRODUCT USED FOR UNKNOWN INDICATION
     Route: 042
     Dates: start: 20180916, end: 20180916
  33. CYCLOPHOSPHAMIDE. [Concomitant]
     Active Substance: CYCLOPHOSPHAMIDE
     Indication: PRODUCT USED FOR UNKNOWN INDICATION
     Dosage: 2500 MG, OTHER (ONCE DAILY)
     Route: 042
     Dates: start: 20180916, end: 20180917
  34. POTASSIUM CHLORIDE. [Concomitant]
     Active Substance: POTASSIUM CHLORIDE
     Dosage: 10 MEQ, ONCE DAILY
     Route: 048
     Dates: start: 20181005, end: 20181005
  35. SIROLIMUS. [Concomitant]
     Active Substance: SIROLIMUS
     Route: 048
     Dates: start: 20180927, end: 20180928
  36. MYCOPHENOLATE MOFETIL. [Concomitant]
     Active Substance: MYCOPHENOLATE MOFETIL
     Indication: PRODUCT USED FOR UNKNOWN INDICATION
     Route: 042
     Dates: start: 20180918, end: 20181001
  37. HEMORRHOIDAL                       /00116302/ [Concomitant]
     Indication: PRODUCT USED FOR UNKNOWN INDICATION
     Route: 054
     Dates: start: 20180927, end: 20180928
  38. LEUPROLIDE                         /00726901/ [Concomitant]
     Active Substance: LEUPROLIDE
     Indication: PRODUCT USED FOR UNKNOWN INDICATION
     Dosage: 11.25, ONCE DAILY
     Route: 030
     Dates: start: 20181009, end: 20181009
  39. ALBUTEROL                          /00139501/ [Concomitant]
     Active Substance: ALBUTEROL
     Indication: PRODUCT USED FOR UNKNOWN INDICATION
     Route: 065
     Dates: start: 20181010, end: 20181010
  40. POTASSIUM CHLORIDE. [Concomitant]
     Active Substance: POTASSIUM CHLORIDE
     Dosage: 20 MEQ, ONCE DAILY
     Route: 048
     Dates: start: 20181003, end: 20181003
  41. SIROLIMUS. [Concomitant]
     Active Substance: SIROLIMUS
     Route: 048
     Dates: start: 20180921, end: 20180922
  42. DIPHENHYDRAMINE. [Concomitant]
     Active Substance: DIPHENHYDRAMINE
     Route: 042
     Dates: start: 20180924, end: 20181001
  43. NORMAL SALINE [Concomitant]
     Active Substance: SODIUM CHLORIDE
     Indication: PRODUCT USED FOR UNKNOWN INDICATION
     Route: 040
     Dates: start: 20180916, end: 20180916
  44. ACETAMINOPHEN. [Concomitant]
     Active Substance: ACETAMINOPHEN
     Indication: PRODUCT USED FOR UNKNOWN INDICATION
     Route: 048
     Dates: start: 20180916, end: 20180916
  45. POTASSIUM CHLORIDE. [Concomitant]
     Active Substance: POTASSIUM CHLORIDE
     Dosage: 20 MEQ, TWICE DAILY
     Route: 048
     Dates: start: 20180920, end: 20180920
  46. LOPERAMIDE [Concomitant]
     Active Substance: LOPERAMIDE
     Indication: PRODUCT USED FOR UNKNOWN INDICATION
     Dosage: 2 MG, OTHER (8TIMES A DAY)
     Route: 048
     Dates: start: 20180917, end: 20180918
  47. LOPERAMIDE [Concomitant]
     Active Substance: LOPERAMIDE
     Route: 048
     Dates: start: 20180919, end: 20180921
  48. FILGRASTIM [Concomitant]
     Active Substance: FILGRASTIM
     Dosage: 480 ?G, ONCE DAILY
     Route: 058
     Dates: start: 20181007, end: 20181007
  49. HEMORRHOIDAL                       /00116302/ [Concomitant]
     Dosage: 1 DF, ONCE DAILY (BED TIME NIGHTLY)
     Route: 054
     Dates: start: 20180930, end: 20181002
  50. NORMAL SALINE [Concomitant]
     Active Substance: SODIUM CHLORIDE
     Route: 042
     Dates: start: 20180925, end: 20180926
  51. SIROLIMUS. [Concomitant]
     Active Substance: SIROLIMUS
     Route: 048
     Dates: start: 20180923, end: 20180926
  52. FILGRASTIM [Concomitant]
     Active Substance: FILGRASTIM
     Indication: PRODUCT USED FOR UNKNOWN INDICATION
     Dosage: 480 ?G, ONCE DAILY
     Route: 058
     Dates: start: 20180918, end: 20181001
  53. DIPHENOXYLATE/ATROPINE [Concomitant]
     Active Substance: ATROPINE\DIPHENOXYLATE
     Indication: PRODUCT USED FOR UNKNOWN INDICATION
     Dosage: 2.5 MG, EVERY 8 HOURS
     Route: 048
     Dates: start: 20180919, end: 20180919
  54. CEPACOL                            /00283202/ [Concomitant]
     Indication: PRODUCT USED FOR UNKNOWN INDICATION
     Route: 045
     Dates: start: 20180929, end: 20180929
  55. NORMAL SALINE [Concomitant]
     Active Substance: SODIUM CHLORIDE
     Route: 042
     Dates: start: 20180920, end: 20180921
  56. NORMAL SALINE [Concomitant]
     Active Substance: SODIUM CHLORIDE
     Route: 042
     Dates: start: 20180924, end: 20180925
  57. NORMAL SALINE [Concomitant]
     Active Substance: SODIUM CHLORIDE
     Route: 042
     Dates: start: 20180926, end: 20180927

REACTIONS (4)
  - Febrile neutropenia [Unknown]
  - Chills [Unknown]
  - Feeling hot [Unknown]
  - Diarrhoea [Unknown]

NARRATIVE: CASE EVENT DATE: 20181014
